FAERS Safety Report 19467376 (Version 1)
Quarter: 2021Q2

REPORT INFORMATION
  Report Type: Spontaneous
  Country: US (occurrence: US)
  Receive Date: 20210626
  Receipt Date: 20210626
  Transmission Date: 20210717
  Serious: No
  Sender: FDA-Public Use
  Company Number: None

PATIENT
  Age: 86 Year
  Sex: Female
  Weight: 77.1 kg

DRUGS (10)
  1. XIFAXAN [Concomitant]
     Active Substance: RIFAXIMIN
  2. VITAMIN C [Concomitant]
     Active Substance: ASCORBIC ACID
  3. PANTOPRAZOLE SODIUM. [Concomitant]
     Active Substance: PANTOPRAZOLE SODIUM
  4. FUROSEMIDE. [Concomitant]
     Active Substance: FUROSEMIDE
  5. MULTIVITAMIN/EXTRA VITAMIN D3 [Concomitant]
  6. MAGNESIUM [Concomitant]
     Active Substance: MAGNESIUM
  7. LETROZOLE. [Concomitant]
     Active Substance: LETROZOLE
  8. IBRANCE [Suspect]
     Active Substance: PALBOCICLIB
     Indication: BREAST CANCER
     Dates: start: 20210602, end: 20210616
  9. IRON [Concomitant]
     Active Substance: IRON
  10. LACTULOSE. [Concomitant]
     Active Substance: LACTULOSE

REACTIONS (2)
  - White blood cell count decreased [None]
  - Therapy interrupted [None]

NARRATIVE: CASE EVENT DATE: 20210616
